FAERS Safety Report 9535642 (Version 1)
Quarter: 2013Q3

REPORT INFORMATION
  Report Type: Spontaneous
  Country: US (occurrence: US)
  Receive Date: 20130919
  Receipt Date: 20130919
  Transmission Date: 20140515
  Serious: No
  Sender: FDA-Public Use
  Company Number: US-BIOGENIDEC-2013BI082960

PATIENT
  Age: 36 Year
  Sex: Female

DRUGS (3)
  1. AVONEX [Suspect]
     Indication: MULTIPLE SCLEROSIS
     Route: 030
  2. AVONEX [Suspect]
     Indication: MULTIPLE SCLEROSIS
     Route: 030
     Dates: start: 20120801
  3. AVONEX [Suspect]
     Indication: MULTIPLE SCLEROSIS
     Route: 030
     Dates: start: 20120830, end: 20130805

REACTIONS (5)
  - Nuclear magnetic resonance imaging abnormal [Not Recovered/Not Resolved]
  - Stress [Recovered/Resolved]
  - Hypoaesthesia [Recovered/Resolved]
  - Multiple sclerosis relapse [Recovered/Resolved with Sequelae]
  - Paraesthesia [Not Recovered/Not Resolved]
